FAERS Safety Report 6410138-5 (Version None)
Quarter: 2009Q4

REPORT INFORMATION
  Report Type: 
  Country: None (occurrence: None)
  Receive Date: 20091022
  Receipt Date: 20091013
  Transmission Date: 20100525
  Serious: Yes (Death, Hospitalization)
  Sender: FDA-Public Use
  Company Number: US-ROCHE-656073

PATIENT
  Sex: Female
  Weight: 62.6 kg

DRUGS (1)
  1. CAPECITABINE [Suspect]
     Indication: COLORECTAL CANCER
     Dosage: FREQUENCY: 3 TABLETS TWICE DAILY
     Route: 048
     Dates: start: 20090728

REACTIONS (3)
  - DEATH [None]
  - DIARRHOEA [None]
  - ELECTROLYTE IMBALANCE [None]
